FAERS Safety Report 5750308-2 (Version None)
Quarter: 2008Q2

REPORT INFORMATION
  Report Type: 
  Country: None (occurrence: None)
  Receive Date: 20080521
  Receipt Date: 20080521
  Transmission Date: 20081010
  Serious: Yes (Other)
  Sender: FDA-Public Use
  Company Number: None

PATIENT
  Age: 26 Year
  Sex: Female
  Weight: 56.6996 kg

DRUGS (2)
  1. TERBINAFINE 250 MG DR. REDDY'S [Suspect]
     Indication: ONYCHOMYCOSIS
     Dosage: 250 MG QD PO
     Route: 048
     Dates: start: 20080415, end: 20080520
  2. TRETINOIN [Concomitant]

REACTIONS (2)
  - DISEASE RECURRENCE [None]
  - TINEA INFECTION [None]
